FAERS Safety Report 6636188-1 (Version None)
Quarter: 2010Q1

REPORT INFORMATION
  Report Type: 
  Country: None (occurrence: None)
  Receive Date: 20100316
  Receipt Date: 20100304
  Transmission Date: 20100710
  Serious: Yes (Hospitalization, Disabling, Other)
  Sender: FDA-Public Use
  Company Number: US-ELI_LILLY_AND_COMPANY-US200911005487

PATIENT
  Sex: Male
  Weight: 121.54 kg

DRUGS (7)
  1. ZYPREXA [Suspect]
     Indication: SCHIZOPHRENIA
     Dosage: 40 MG, DAILY (1/D)
     Dates: end: 20060101
  2. ZYPREXA [Suspect]
     Dosage: 20 MG, UNK
  3. ZYPREXA [Suspect]
     Dosage: 10 MG, UNK
     Route: 048
     Dates: end: 20061027
  4. AVANDIA [Concomitant]
     Dosage: 4 MG, DAILY (1/D)
  5. RISPERDAL [Concomitant]
     Dosage: 2 MG, DAILY (1/D)
  6. PEPCID [Concomitant]
  7. ALLOPURINOL [Concomitant]

REACTIONS (15)
  - BLOOD CHOLESTEROL INCREASED [None]
  - BLOOD TRIGLYCERIDES INCREASED [None]
  - CARDIOVASCULAR DISORDER [None]
  - DEHYDRATION [None]
  - DIABETES MELLITUS [None]
  - DIABETIC COMA [None]
  - HYPERTENSION [None]
  - METABOLIC ENCEPHALOPATHY [None]
  - METABOLIC SYNDROME [None]
  - OBESITY [None]
  - OVERDOSE [None]
  - PANCREATITIS ACUTE [None]
  - RENAL FAILURE ACUTE [None]
  - SEPSIS [None]
  - WEIGHT INCREASED [None]
